FAERS Safety Report 25143634 (Version 6)
Quarter: 2025Q4

REPORT INFORMATION
  Report Type: Report from Study
  Country: CA (occurrence: CA)
  Receive Date: 20250401
  Receipt Date: 20251016
  Transmission Date: 20260118
  Serious: Yes (Other)
  Sender: CELLTRION
  Company Number: CA-CELLTRION INC.-2025CA002218

PATIENT

DRUGS (3)
  1. USTEKINUMAB [Suspect]
     Active Substance: USTEKINUMAB
     Indication: Crohn^s disease
     Dosage: 90 MG EVERY 4 WEEKS / 90 MILLIGRAM 1 EVERY 4 WEEKS
     Route: 058
     Dates: start: 20250121
  2. USTEKINUMAB [Suspect]
     Active Substance: USTEKINUMAB
     Dosage: 90 MG EVERY 4 WEEKS (INJECTION #3 TODAY)
     Route: 058
  3. USTEKINUMAB [Suspect]
     Active Substance: USTEKINUMAB
     Dosage: 90 MG
     Route: 058
     Dates: start: 202501

REACTIONS (7)
  - Gallbladder disorder [Unknown]
  - Pain [Unknown]
  - Cholecystitis infective [Unknown]
  - Intentional product use issue [Unknown]
  - Cholelithiasis [Unknown]
  - Biliary colic [Unknown]
  - Diarrhoea [Unknown]

NARRATIVE: CASE EVENT DATE: 20250121
